FAERS Safety Report 7192128-0 (Version None)
Quarter: 2010Q4

REPORT INFORMATION
  Report Type: 
  Country: None (occurrence: None)
  Receive Date: 20101223
  Receipt Date: 20100823
  Transmission Date: 20110411
  Serious: No
  Sender: FDA-Public Use
  Company Number: US-AMGEN-KDL433212

PATIENT

DRUGS (6)
  1. ENBREL [Suspect]
     Indication: PRODUCT USED FOR UNKNOWN INDICATION
     Dosage: 50 MG, QWK
     Route: 058
  2. PREDNISONE [Concomitant]
     Dosage: 1 MG, UNK
  3. PREGABALIN [Concomitant]
     Dosage: 100 MG, UNK
  4. COLCHICINE [Concomitant]
     Dosage: .6 MG, UNK
  5. IBUPROFEN [Concomitant]
     Dosage: UNK UNK, UNK
  6. ERGOCALCIFEROL [Concomitant]
     Dosage: 1000 IU, UNK

REACTIONS (6)
  - CONTUSION [None]
  - ERYTHEMA [None]
  - INJECTION SITE ERYTHEMA [None]
  - INJECTION SITE SWELLING [None]
  - OEDEMA PERIPHERAL [None]
  - PRURITUS [None]
